FAERS Safety Report 13028251 (Version 1)
Quarter: 2016Q4

REPORT INFORMATION
  Report Type: Spontaneous
  Country: FR (occurrence: FR)
  Receive Date: 20161214
  Receipt Date: 20161214
  Transmission Date: 20170207
  Serious: Yes (Hospitalization)
  Sender: FDA-Public Use
  Company Number: FR-SA-2016SA226823

PATIENT
  Age: 50 Year
  Sex: Male

DRUGS (10)
  1. LEPTICUR [Concomitant]
     Active Substance: TROPATEPINE HYDROCHLORIDE
     Indication: MENTAL DISORDER
  2. ZOLOFT [Concomitant]
     Active Substance: SERTRALINE HYDROCHLORIDE
     Indication: MENTAL DISORDER
  3. JANUVIA [Concomitant]
     Active Substance: SITAGLIPTIN PHOSPHATE
     Indication: TYPE 2 DIABETES MELLITUS
  4. THERALENE [Concomitant]
     Active Substance: TRIMEPRAZINE
     Indication: MENTAL DISORDER
     Dosage: 40 MG/ML
  5. IRBESARTAN. [Suspect]
     Active Substance: IRBESARTAN
     Dosage: 30 TABLETS OF IRBESARTAN
     Route: 048
     Dates: start: 20161024, end: 20161024
  6. TAHOR [Concomitant]
     Active Substance: ATORVASTATIN CALCIUM
     Indication: DYSLIPIDAEMIA
  7. MONO-TILDIEM LP [Suspect]
     Active Substance: DILTIAZEM
     Dosage: FORM-PROLONGED RELEASE CAPSULE?30 TABLETS OF DILTIAZEM HYDROCHLORIDE
     Route: 048
     Dates: start: 20161024, end: 20161024
  8. AMAREL [Concomitant]
     Active Substance: GLIMEPIRIDE
     Indication: TYPE 2 DIABETES MELLITUS
  9. RISPERDAL [Concomitant]
     Active Substance: RISPERIDONE
     Indication: MENTAL DISORDER
  10. ALPRAZOLAM. [Concomitant]
     Active Substance: ALPRAZOLAM
     Indication: MENTAL DISORDER

REACTIONS (6)
  - Bradycardia [Recovered/Resolved]
  - Somnolence [Recovered/Resolved]
  - Hypotension [Recovered/Resolved]
  - Shock [Recovered/Resolved]
  - Intentional overdose [Unknown]
  - Atrioventricular block first degree [Unknown]

NARRATIVE: CASE EVENT DATE: 20161024
